FAERS Safety Report 8010054-1 (Version None)
Quarter: 2011Q4

REPORT INFORMATION
  Report Type: 
  Country: None (occurrence: None)
  Receive Date: 20111221
  Receipt Date: 20111206
  Transmission Date: 20120403
  Serious: Yes (Hospitalization)
  Sender: FDA-Public Use
  Company Number: VENL20110003

PATIENT
  Age: 30 Year
  Sex: Female

DRUGS (1)
  1. VENLAFAXINE HCL [Suspect]
     Indication: PRODUCT USED FOR UNKNOWN INDICATION
     Dosage: UNK, UNK, UNKNOWN

REACTIONS (6)
  - SUICIDE ATTEMPT [None]
  - BLOOD PRESSURE INCREASED [None]
  - INTENTIONAL OVERDOSE [None]
  - STRESS CARDIOMYOPATHY [None]
  - HYPERHIDROSIS [None]
  - PULMONARY OEDEMA [None]
